FAERS Safety Report 17251706 (Version 1)
Quarter: 2020Q1

REPORT INFORMATION
  Report Type: Spontaneous
  Country: US (occurrence: US)
  Receive Date: 20200109
  Receipt Date: 20200109
  Transmission Date: 20200409
  Serious: Yes (Other)
  Sender: FDA-Public Use
  Company Number: US-SA-2020SA002986

PATIENT
  Age: 74 Year
  Sex: Male

DRUGS (6)
  1. ETHAMBUTOL [Suspect]
     Active Substance: ETHAMBUTOL HYDROCHLORIDE
     Indication: DISSEMINATED TUBERCULOSIS
     Dosage: UNK
  2. RIFAMPICIN [Suspect]
     Active Substance: RIFAMPIN
     Indication: DISSEMINATED TUBERCULOSIS
     Dosage: UNK
  3. MYCOPHENOLATE MOFETIL. [Concomitant]
     Active Substance: MYCOPHENOLATE MOFETIL
     Dosage: 250 MG, BID
  4. SIROLIMUS. [Concomitant]
     Active Substance: SIROLIMUS
     Dosage: 1 MG, QD
  5. ISONIAZID. [Suspect]
     Active Substance: ISONIAZID
     Indication: DISSEMINATED TUBERCULOSIS
     Dosage: UNK
  6. PYRAZINAMIDE. [Suspect]
     Active Substance: PYRAZINAMIDE
     Indication: DISSEMINATED TUBERCULOSIS
     Dosage: UNK

REACTIONS (6)
  - Drug interaction [Recovered/Resolved]
  - Lung infiltration [Recovered/Resolved]
  - Weight decreased [Recovered/Resolved]
  - Immune reconstitution inflammatory syndrome [Recovered/Resolved]
  - Hepatotoxicity [Recovered/Resolved]
  - Dyspnoea [Recovered/Resolved]
